FAERS Safety Report 23899403 (Version 1)
Quarter: 2024Q2

REPORT INFORMATION
  Report Type: Other
  Country: JP (occurrence: None)
  Receive Date: 20240526
  Receipt Date: 20240526
  Transmission Date: 20240716
  Serious: Yes (Other)
  Sender: FDA-Public Use
  Company Number: JP-ROCHE-3567565

PATIENT

DRUGS (4)
  1. BEVACIZUMAB [Suspect]
     Active Substance: BEVACIZUMAB
     Indication: Colorectal cancer metastatic
     Route: 042
  2. CAPECITABINE [Suspect]
     Active Substance: CAPECITABINE
     Indication: Colorectal cancer metastatic
     Dosage: FOR DAYS 1 TO 14 EVERY 3 WEEKS
     Route: 048
  3. OLAPARIB [Suspect]
     Active Substance: OLAPARIB
     Indication: Colorectal cancer metastatic
     Route: 048
  4. FLUOROURACIL [Suspect]
     Active Substance: FLUOROURACIL
     Indication: Colorectal cancer metastatic
     Dosage: OVER 46-48 HOURS
     Route: 042

REACTIONS (10)
  - Anaemia [Unknown]
  - Fatigue [Unknown]
  - Hypertension [Unknown]
  - Vomiting [Unknown]
  - Diarrhoea [Unknown]
  - Neutrophil count decreased [Unknown]
  - Nausea [Unknown]
  - Decreased appetite [Unknown]
  - Asthenia [Unknown]
  - Dysgeusia [Unknown]
